FAERS Safety Report 8460441 (Version 4)
Quarter: 2012Q4

REPORT INFORMATION
  Report Type: 
  Country: US (occurrence: US)
  Receive Date: 20120315
  Receipt Date: 20121001
  Transmission Date: 20130627
  Serious: No
  Sender: FDA-Public Use
  Company Number: US-PFIZER INC-2012066318

PATIENT
  Sex: Male

DRUGS (1)
  1. CHANTIX [Suspect]
     Dosage: UNK

REACTIONS (8)
  - Pain [Unknown]
  - Oesophageal discomfort [Unknown]
  - Abdominal discomfort [Unknown]
  - Asthenia [Unknown]
  - Laziness [Unknown]
  - Insomnia [Unknown]
  - Therapeutic response unexpected [Unknown]
  - Off label use [Unknown]
